FAERS Safety Report 10248335 (Version 1)
Quarter: 2014Q2

REPORT INFORMATION
  Report Type: Spontaneous
  Country: US (occurrence: US)
  Receive Date: 20140620
  Receipt Date: 20140620
  Transmission Date: 20141212
  Serious: Yes (Hospitalization)
  Sender: FDA-Public Use
  Company Number: US-DRREDDYS-USA/USA/13/0029839

PATIENT
  Age: 43 Year
  Sex: Male

DRUGS (5)
  1. TACROLIMUS [Suspect]
     Indication: IMMUNOSUPPRESSION
     Route: 065
  2. TACROLIMUS [Suspect]
     Route: 065
  3. PREDNISONE [Suspect]
     Indication: IMMUNOSUPPRESSION
     Route: 065
  4. PREDNISONE [Suspect]
     Route: 065
  5. MYCOPHENOLATE [Suspect]
     Indication: IMMUNOSUPPRESSION
     Route: 065

REACTIONS (3)
  - Substance-induced psychotic disorder [Recovering/Resolving]
  - BK virus infection [Recovered/Resolved]
  - Hypertension [Unknown]
